FAERS Safety Report 18903426 (Version 1)
Quarter: 2021Q1

REPORT INFORMATION
  Report Type: Spontaneous
  Country: US (occurrence: US)
  Receive Date: 20210216
  Receipt Date: 20210216
  Transmission Date: 20210420
  Serious: No
  Sender: FDA-Public Use
  Company Number: US-JNJFOC-20210217354

PATIENT
  Age: 44 Year
  Sex: Female
  Weight: 79.45 kg

DRUGS (1)
  1. CHILDRENS ZYRTEC [Suspect]
     Active Substance: CETIRIZINE HYDROCHLORIDE
     Indication: HYPERSENSITIVITY
     Dosage: 10ML? ONCE A DAY; LAST ADMINISTRATION DATE: 01?DEC?2020
     Route: 048
     Dates: start: 20201121

REACTIONS (2)
  - Blepharospasm [Not Recovered/Not Resolved]
  - Crying [Not Recovered/Not Resolved]

NARRATIVE: CASE EVENT DATE: 20201201
